FAERS Safety Report 9310222 (Version 1)
Quarter: 2013Q2

REPORT INFORMATION
  Report Type: Spontaneous
  Country: GB (occurrence: GB)
  Receive Date: 20130527
  Receipt Date: 20130527
  Transmission Date: 20140414
  Serious: Yes (Other)
  Sender: FDA-Public Use
  Company Number: PHFR2013GB003050

PATIENT
  Age: 68 Year
  Sex: Male

DRUGS (1)
  1. VOLTAROL [Suspect]
     Indication: ANKYLOSING SPONDYLITIS
     Dosage: 100, MG DAILY
     Route: 048

REACTIONS (1)
  - Leukaemia [Not Recovered/Not Resolved]
